FAERS Safety Report 9184184 (Version 2)
Quarter: 2013Q1

REPORT INFORMATION
  Report Type: Report from Study
  Country: RU (occurrence: RU)
  Receive Date: 20130322
  Receipt Date: 20130322
  Transmission Date: 20140127
  Serious: Yes (Hospitalization)
  Sender: FDA-Public Use
  Company Number: RU-PFIZER INC-2012326356

PATIENT
  Age: 65 Year
  Sex: Female

DRUGS (4)
  1. FLUOROURACIL [Suspect]
     Indication: METASTATIC GASTRIC CANCER
     Dosage: CURRENT CYCLE 1, 800 MG/M2/DAY, DAYS 1-5 IN A 21 DAY CYCLE (CYCLICAL)
     Route: 041
     Dates: end: 20121126
  2. CISPLATIN [Suspect]
     Indication: METASTATIC GASTRIC CANCER
     Dosage: CURRENT CYCLE 1 (CYCLICAL)
     Route: 041
     Dates: end: 20121126
  3. DEXAMONOZON [Suspect]
     Dosage: UNK
  4. L-THYROXIN [Suspect]
     Dosage: UNK

REACTIONS (1)
  - Blood electrolytes abnormal [Recovered/Resolved]
